FAERS Safety Report 4793523-7 (Version None)
Quarter: 2005Q4

REPORT INFORMATION
  Report Type: 
  Country: None (occurrence: None)
  Receive Date: 20051006
  Receipt Date: 20050117
  Transmission Date: 20060501
  Serious: Yes (Other)
  Sender: FDA-Public Use
  Company Number: 16224

PATIENT
  Age: 60 Year
  Sex: Female

DRUGS (2)
  1. DOXORUBICIN HCL [Suspect]
     Indication: BREAST CANCER
     Dosage: 32 MG IV X1
     Route: 042
     Dates: start: 20050117
  2. DOXORUBICIN HCL [Suspect]
     Indication: LUNG NEOPLASM MALIGNANT
     Dosage: 32 MG IV X1
     Route: 042
     Dates: start: 20050117

REACTIONS (3)
  - CHEST DISCOMFORT [None]
  - HYPOAESTHESIA [None]
  - NAUSEA [None]
